FAERS Safety Report 12136726 (Version 1)
Quarter: 2016Q1

REPORT INFORMATION
  Report Type: Spontaneous
  Country: CA (occurrence: CA)
  Receive Date: 20160302
  Receipt Date: 20160302
  Transmission Date: 20160526
  Serious: Yes (Life-Threatening)
  Sender: FDA-Public Use
  Company Number: CA-JNJFOC-20160224904

PATIENT
  Age: 6 Decade
  Sex: Female

DRUGS (6)
  1. CLIMARA [Suspect]
     Active Substance: ESTRADIOL
     Indication: AFFECTIVE DISORDER
     Route: 065
  2. ESTRADOT [Suspect]
     Active Substance: ESTRADIOL
     Indication: AFFECTIVE DISORDER
     Route: 065
  3. ESTRACE [Suspect]
     Active Substance: ESTRADIOL
     Indication: AFFECTIVE DISORDER
     Route: 065
  4. CIPRALEX [Concomitant]
     Active Substance: ESCITALOPRAM OXALATE
     Indication: DEPRESSION
     Dosage: HAS BEEN ON IT FOR 4-5 YEARS
     Route: 065
  5. ORTHO EVRA [Suspect]
     Active Substance: ETHINYL ESTRADIOL\NORELGESTROMIN
     Indication: AFFECTIVE DISORDER
     Dosage: 6.0 MG NORELGESTROMIN AND 0.60 MG ETHINYL ESTRADIOL
     Route: 062
     Dates: start: 2005
  6. WELLBUTRIN [Concomitant]
     Active Substance: BUPROPION HYDROCHLORIDE
     Indication: DEPRESSION
     Dosage: HAS BEEN ON IT FOR 4-5YEARS
     Route: 065

REACTIONS (3)
  - Off label use [Unknown]
  - Suicide attempt [Unknown]
  - Product use issue [Unknown]
